FAERS Safety Report 8251399-X (Version None)
Quarter: 2012Q2

REPORT INFORMATION
  Report Type: 
  Country: None (occurrence: None)
  Receive Date: 20120402
  Receipt Date: 20120328
  Transmission Date: 20120825
  Serious: Yes (Hospitalization, Other)
  Sender: FDA-Public Use
  Company Number: FR-PFIZER INC-2012040601

PATIENT
  Age: 73 Year
  Sex: Male
  Weight: 130 kg

DRUGS (1)
  1. LYRICA [Suspect]
     Dosage: EVERY DAY

REACTIONS (2)
  - SYNCOPE [None]
  - LOSS OF CONSCIOUSNESS [None]
